FAERS Safety Report 23124019 (Version 1)
Quarter: 2023Q4

REPORT INFORMATION
  Report Type: Other
  Country: US (occurrence: None)
  Receive Date: 20231030
  Receipt Date: 20231030
  Transmission Date: 20240109
  Serious: Yes (Other)
  Sender: FDA-Public Use
  Company Number: US-ROCHE-3442093

PATIENT
  Age: 37 Year
  Sex: Female
  Weight: 49.94 kg

DRUGS (2)
  1. OCREVUS [Suspect]
     Active Substance: OCRELIZUMAB
     Indication: Multiple sclerosis
     Dosage: THEN 600 MG EVERY 6 MONTHS, DATE OF TREATMENT: 15/AUG/2022, 09/DEC/2022
     Route: 042
     Dates: start: 20220801, end: 20230609
  2. TECFIDERA [Concomitant]
     Active Substance: DIMETHYL FUMARATE

REACTIONS (5)
  - Multiple sclerosis [Unknown]
  - Urinary tract infection [Unknown]
  - Inflammation [Unknown]
  - Gait disturbance [Unknown]
  - Dysarthria [Unknown]
